FAERS Safety Report 9905856 (Version 3)
Quarter: 2015Q3

REPORT INFORMATION
  Report Type: Spontaneous
  Country: US (occurrence: US)
  Receive Date: 20140218
  Receipt Date: 20150811
  Transmission Date: 20151125
  Serious: No
  Sender: FDA-Public Use
  Company Number: US-GILEAD-2012-0050319

PATIENT
  Age: 44 Year
  Sex: Female
  Weight: 40.36 kg

DRUGS (12)
  1. COUMADIN [Concomitant]
     Active Substance: WARFARIN SODIUM
  2. ZOLPIDEM TARTRATE. [Concomitant]
     Active Substance: ZOLPIDEM TARTRATE
  3. OXYGEN. [Concomitant]
     Active Substance: OXYGEN
  4. LOSARTAN POTASSIUM. [Concomitant]
     Active Substance: LOSARTAN POTASSIUM
  5. LETAIRIS [Suspect]
     Active Substance: AMBRISENTAN
     Indication: PULMONARY ARTERY ATRESIA
  6. LETAIRIS [Suspect]
     Active Substance: AMBRISENTAN
     Indication: FALLOT^S TETRALOGY
  7. AMIODARONE [Concomitant]
     Active Substance: AMIODARONE
  8. TYVASO [Concomitant]
     Active Substance: TREPROSTINIL
  9. REVATIO [Concomitant]
     Active Substance: SILDENAFIL CITRATE
  10. LEVOTHYROXINE SODIUM. [Concomitant]
     Active Substance: LEVOTHYROXINE SODIUM
  11. LETAIRIS [Suspect]
     Active Substance: AMBRISENTAN
     Indication: PULMONARY HYPERTENSION
     Dosage: 5 MG, UNK
     Route: 048
     Dates: start: 20111130
  12. LETAIRIS [Suspect]
     Active Substance: AMBRISENTAN
     Indication: HEART DISEASE CONGENITAL

REACTIONS (6)
  - Abdominal distension [Unknown]
  - Swelling [Unknown]
  - Chest discomfort [Unknown]
  - Throat irritation [Unknown]
  - Cough [Unknown]
  - Headache [Unknown]
